FAERS Safety Report 6300916-5 (Version None)
Quarter: 2009Q3

REPORT INFORMATION
  Report Type: 
  Country: None (occurrence: None)
  Receive Date: 20090806
  Receipt Date: 20090806
  Transmission Date: 20100115
  Serious: No
  Sender: FDA-Public Use
  Company Number: None

PATIENT
  Age: 69 Year
  Sex: Female
  Weight: 85.2762 kg

DRUGS (2)
  1. PROCARDIA XL [Suspect]
  2. GLUCOTROL XL [Suspect]

REACTIONS (3)
  - ADVERSE REACTION [None]
  - COUGH [None]
  - PRODUCT SUBSTITUTION ISSUE [None]
